FAERS Safety Report 11227885 (Version 4)
Quarter: 2015Q4

REPORT INFORMATION
  Report Type: Spontaneous
  Country: CN (occurrence: CN)
  Receive Date: 20150630
  Receipt Date: 20151218
  Transmission Date: 20160304
  Serious: Yes (Hospitalization, Other)
  Sender: FDA-Public Use
  Company Number: CN-GLAXOSMITHKLINE-CN2015GSK085218

PATIENT
  Age: 27 Year
  Sex: Female
  Weight: 70 kg

DRUGS (4)
  1. LAMICTAL [Suspect]
     Active Substance: LAMOTRIGINE
     Dosage: 300 MG, 1D
     Route: 048
  2. LAMICTAL [Suspect]
     Active Substance: LAMOTRIGINE
     Indication: EPILEPSY
     Dosage: 300 MG, QD
     Route: 048
     Dates: start: 1998
  3. LAMICTAL [Suspect]
     Active Substance: LAMOTRIGINE
     Dosage: 100 MG, BID
     Route: 048
  4. OXCARBAZEPINE. [Suspect]
     Active Substance: OXCARBAZEPINE
     Indication: EPILEPSY
     Dosage: 450 MG, QD
     Route: 048

REACTIONS (7)
  - Somnolence [Unknown]
  - Exposure during pregnancy [Unknown]
  - Maternal exposure before pregnancy [Unknown]
  - Epilepsy [Not Recovered/Not Resolved]
  - Loss of consciousness [Unknown]
  - Muscle spasticity [Unknown]
  - Fatigue [Unknown]

NARRATIVE: CASE EVENT DATE: 2015
